FAERS Safety Report 5496164-1 (Version None)
Quarter: 2007Q4

REPORT INFORMATION
  Report Type: 
  Country: None (occurrence: None)
  Receive Date: 20071023
  Receipt Date: 20071023
  Transmission Date: 20080405
  Serious: Yes (Other)
  Sender: FDA-Public Use
  Company Number: None

PATIENT
  Age: 12 Year
  Sex: Male
  Weight: 100 kg

DRUGS (1)
  1. KETAMINE HCL [Suspect]
     Indication: SEDATION
     Dosage: 250MG ONCE IV
     Route: 042

REACTIONS (3)
  - ATAXIA [None]
  - GRAND MAL CONVULSION [None]
  - NAUSEA [None]
